FAERS Safety Report 12916364 (Version 2)
Quarter: 2016Q4

REPORT INFORMATION
  Report Type: Spontaneous
  Country: JP (occurrence: JP)
  Receive Date: 20161107
  Receipt Date: 20161118
  Transmission Date: 20170207
  Serious: Yes (Other)
  Sender: FDA-Public Use
  Company Number: JP-SUN PHARMACEUTICAL INDUSTRIES LTD-2016RR-127035

PATIENT
  Age: 83 Year
  Sex: Male

DRUGS (2)
  1. VALTREX [Suspect]
     Active Substance: VALACYCLOVIR HYDROCHLORIDE
     Indication: HERPES ZOSTER
     Dosage: 3000 MG, UNK
     Route: 065
  2. LOXOPROFEN [Concomitant]
     Active Substance: LOXOPROFEN
     Indication: HEADACHE
     Dosage: 180 MG, UNK
     Route: 065

REACTIONS (6)
  - Depressed level of consciousness [Recovering/Resolving]
  - Restlessness [Recovering/Resolving]
  - Acute kidney injury [Recovering/Resolving]
  - Neurotoxicity [Recovering/Resolving]
  - Decreased appetite [Recovering/Resolving]
  - Dysarthria [Recovering/Resolving]
